FAERS Safety Report 7761672-7 (Version None)
Quarter: 2011Q3

REPORT INFORMATION
  Report Type: 
  Country: None (occurrence: None)
  Receive Date: 20110920
  Receipt Date: 20110908
  Transmission Date: 20111222
  Serious: Yes (Hospitalization, Other)
  Sender: FDA-Public Use
  Company Number: PHHY2011US55620

PATIENT
  Sex: Female

DRUGS (8)
  1. SANDIMMUNE [Suspect]
     Indication: RENAL TRANSPLANT
  2. OXYGEN [Concomitant]
     Dosage: 2 L, UNK
  3. PREDNISONE [Concomitant]
     Indication: IMMUNOSUPPRESSION
     Dosage: 5 MG, UNK
     Route: 048
     Dates: start: 20000907
  4. SANDIMMUNE [Suspect]
     Indication: IMMUNOSUPPRESSION
     Dosage: 200 MG, BID
     Route: 048
     Dates: start: 20000907
  5. LOVENOX [Concomitant]
     Indication: DEEP VEIN THROMBOSIS
     Dosage: 40 MG, UNK
     Route: 058
  6. MORPHINE [Concomitant]
     Dosage: 1 MG, UNK
  7. PERCOCET [Concomitant]
     Indication: PAIN
     Dosage: 5/325 MG
  8. IMURAN [Concomitant]
     Indication: IMMUNOSUPPRESSION
     Dosage: 150 MG, TID
     Route: 048
     Dates: start: 20020216

REACTIONS (7)
  - ABDOMINAL ADHESIONS [None]
  - HAEMOGLOBIN DECREASED [None]
  - BLOOD CALCIUM DECREASED [None]
  - UTERINE LEIOMYOMA [None]
  - DISCOMFORT [None]
  - DYSPNOEA [None]
  - BLOOD CHLORIDE INCREASED [None]
